FAERS Safety Report 9505581 (Version 1)
Quarter: 2013Q1

REPORT INFORMATION
  Report Type: Spontaneous
  Country: US (occurrence: None)
  Receive Date: 20130220
  Receipt Date: 20130220
  Transmission Date: 20140127
  Serious: No
  Sender: FDA-Public Use
  Company Number: 1000041295

PATIENT
  Age: 72 Year
  Sex: Female

DRUGS (14)
  1. VIIBRYD [Suspect]
     Indication: DEPRESSION
     Route: 048
     Dates: start: 20121006, end: 20121012
  2. VIIBRYD [Suspect]
     Indication: DEPRESSION
     Route: 048
     Dates: start: 20121020, end: 20121211
  3. OMEPRAZOLE (OMEPRAZOLE) [Concomitant]
  4. AMLODIPINE (AMLODIPINE) [Concomitant]
  5. VIT D (ERGOCALCIFEROL) [Concomitant]
  6. ZETIA (EZETIMIBE) [Concomitant]
  7. PRAVASTATIN (PRAVASTATIN) [Concomitant]
  8. PRANDIAL (VOGLIBOSE) [Concomitant]
  9. LANTUS (INSULIN GLARGINE) [Concomitant]
  10. JANUVIA (SITAGLIPTIN PHOSPHATE) [Concomitant]
  11. ASPIRIN (ACETYLSALICYLIC ACID) [Concomitant]
  12. COZAAR (LOSARTAN POTASSIUM) [Concomitant]
  13. XANAX (ALPRAZOLAM) [Concomitant]
  14. PERCOCET (PERCOCET) [Concomitant]

REACTIONS (2)
  - Paraesthesia [None]
  - Gingival pain [None]
